FAERS Safety Report 8401199-2 (Version None)
Quarter: 2012Q2

REPORT INFORMATION
  Report Type: 
  Country: None (occurrence: None)
  Receive Date: 20120601
  Receipt Date: 20120524
  Transmission Date: 20120825
  Serious: Yes (Hospitalization, Other)
  Sender: FDA-Public Use
  Company Number: PHHO2012ES004296

PATIENT
  Sex: Female
  Weight: 54.5 kg

DRUGS (2)
  1. ARANESP [Concomitant]
     Indication: ANAEMIA
     Dosage: 100 MG, QW (/ WEEK)
     Dates: start: 20110308
  2. ILARIS [Suspect]
     Indication: IMMUNE SYSTEM DISORDER
     Dosage: 300 MG, UNK
     Route: 058
     Dates: start: 20111031

REACTIONS (5)
  - ANAEMIA [None]
  - PNEUMONIA [None]
  - GASTROINTESTINAL HAEMORRHAGE [None]
  - PERITONITIS [None]
  - BACTERAEMIA [None]
